FAERS Safety Report 5822374-7 (Version None)
Quarter: 2008Q3

REPORT INFORMATION
  Report Type: 
  Country: None (occurrence: None)
  Receive Date: 20080722
  Receipt Date: 20080711
  Transmission Date: 20090109
  Serious: Yes (Other)
  Sender: FDA-Public Use
  Company Number: GXKR2008GB06522

PATIENT
  Age: 69 Year
  Sex: Female
  Weight: 55 kg

DRUGS (9)
  1. AMOXICILLIN TRIHYDRATE [Suspect]
     Indication: CHRONIC OBSTRUCTIVE PULMONARY DISEASE
     Dosage: 500 MG, TID, ORAL
     Route: 048
     Dates: start: 20080610, end: 20080615
  2. ACETYLSALICYLIC ACID SRT [Concomitant]
  3. DILTIAZEM HYDROCHLORIDE [Concomitant]
  4. GLYCERYL TRINITRATE (GLYCERYL TRINITRATE) [Concomitant]
  5. LEVOTHYROXINE (LEVOTHYROXNE) [Concomitant]
  6. SALBUTAMOLOL (SALBUTAMOL) INHALER [Concomitant]
  7. FLUTICASONE PROPIONATE W/SALMETEROL XINAFOATE (FLUTICASONE PROPIONATE, [Concomitant]
  8. SIMVASTATIN [Concomitant]
  9. TIOTROPIUM BROMIDE (TIOTROPIUM BROMIDE) [Concomitant]

REACTIONS (2)
  - HYPONATRAEMIA [None]
  - MYALGIA [None]
